FAERS Safety Report 6325479-X (Version None)
Quarter: 2009Q3

REPORT INFORMATION
  Report Type: 
  Country: None (occurrence: None)
  Receive Date: 20090824
  Receipt Date: 20090706
  Transmission Date: 20100115
  Serious: No
  Sender: FDA-Public Use
  Company Number: US-ABBOTT-09P-163-0584119-00

PATIENT
  Sex: Female

DRUGS (5)
  1. NIASPAN [Suspect]
     Indication: BLOOD TRIGLYCERIDES INCREASED
     Dates: start: 20090101, end: 20090626
  2. NIASPAN [Suspect]
     Indication: BLOOD CHOLESTEROL INCREASED
     Dosage: ONE IN AM AND ONE AT NIGHT
     Dates: start: 20090626
  3. VITAMINS [Concomitant]
     Indication: VITAMIN SUPPLEMENTATION
  4. CINNAMON [Concomitant]
     Indication: VITAMIN SUPPLEMENTATION
     Route: 048
  5. FISH OIL [Concomitant]
     Indication: VITAMIN SUPPLEMENTATION
     Route: 048

REACTIONS (2)
  - PARAESTHESIA [None]
  - RASH [None]
